FAERS Safety Report 6555776-4 (Version None)
Quarter: 2010Q1

REPORT INFORMATION
  Report Type: 
  Country: None (occurrence: None)
  Receive Date: 20100128
  Receipt Date: 20100118
  Transmission Date: 20100710
  Serious: Yes (Other)
  Sender: FDA-Public Use
  Company Number: DK-ABBOTT-09P-044-0594921-00

PATIENT
  Sex: Male
  Weight: 80 kg

DRUGS (7)
  1. HUMIRA [Suspect]
     Indication: PSORIATIC ARTHROPATHY
     Route: 058
     Dates: start: 20041105, end: 20081205
  2. METHOTREXATE [Concomitant]
     Indication: PSORIASIS
     Dates: start: 19980101, end: 20081205
  3. METHOTREXATE [Concomitant]
     Indication: PSORIATIC ARTHROPATHY
  4. TODOLAC [Concomitant]
     Indication: PAIN
     Dates: end: 20081204
  5. PAMOL [Concomitant]
     Indication: PAIN
  6. KODEIN [Concomitant]
     Indication: PAIN
  7. ENBREL [Concomitant]
     Indication: DRUG USE FOR UNKNOWN INDICATION
     Dates: start: 20100101

REACTIONS (4)
  - GLOMERULONEPHRITIS [None]
  - PROTEINURIA [None]
  - PSORIASIS [None]
  - PSORIATIC ARTHROPATHY [None]
